FAERS Safety Report 15003794 (Version 2)
Quarter: 2018Q2

REPORT INFORMATION
  Report Type: Spontaneous
  Country: GB (occurrence: GB)
  Receive Date: 20180613
  Receipt Date: 20180619
  Transmission Date: 20180711
  Serious: Yes (Other)
  Sender: FDA-Public Use
  Company Number: GB-ABBVIE-18S-167-2386571-00

PATIENT
  Sex: Male

DRUGS (1)
  1. CREON [Suspect]
     Active Substance: PANCRELIPASE AMYLASE\PANCRELIPASE LIPASE\PANCRELIPASE PROTEASE
     Indication: PRODUCT USED FOR UNKNOWN INDICATION
     Dosage: UNK (28 YEARS AGO)
     Route: 048

REACTIONS (5)
  - Dyspepsia [Unknown]
  - Faecaloma [Unknown]
  - Abdominal distension [Unknown]
  - General physical health deterioration [Unknown]
  - Feeling abnormal [Unknown]
